FAERS Safety Report 8426959-3 (Version None)
Quarter: 2012Q2

REPORT INFORMATION
  Report Type: 
  Country: None (occurrence: None)
  Receive Date: 20120611
  Receipt Date: 20120601
  Transmission Date: 20120825
  Serious: Yes (Death, Hospitalization)
  Sender: FDA-Public Use
  Company Number: FR-JNJFOC-20120512408

PATIENT
  Sex: Male

DRUGS (7)
  1. AMLODIPINE BESYLATE [Concomitant]
  2. ALLOPURINOL [Concomitant]
  3. XARELTO [Suspect]
     Indication: HIP ARTHROPLASTY
     Route: 048
     Dates: start: 20120307
  4. ALBUTEROL SULFATE AUTOHALER [Concomitant]
  5. PAROXETINE HYDROCHLORIDE [Concomitant]
  6. INDAPAMIDE [Concomitant]
  7. PERMIXON [Concomitant]

REACTIONS (1)
  - RESPIRATORY DISORDER [None]
